FAERS Safety Report 18322060 (Version 1)
Quarter: 2020Q3

REPORT INFORMATION
  Report Type: Spontaneous
  Country: US (occurrence: MX)
  Receive Date: 20200928
  Receipt Date: 20200928
  Transmission Date: 20201103
  Serious: Yes (Death, Other)
  Sender: FDA-Public Use
  Company Number: MX-BIOMARINAP-MX-2020-132442

PATIENT
  Age: 7 Year
  Sex: Male

DRUGS (1)
  1. ALDURAZYME [Suspect]
     Active Substance: LARONIDASE
     Indication: MUCOPOLYSACCHARIDOSIS I
     Dosage: 3 DOSAGE FORM, QOW
     Route: 042
     Dates: start: 20150508

REACTIONS (3)
  - Off label use [Unknown]
  - Mechanical ventilation [Unknown]
  - Pneumonia [Fatal]

NARRATIVE: CASE EVENT DATE: 20200822
